FAERS Safety Report 6970605-2 (Version None)
Quarter: 2010Q3

REPORT INFORMATION
  Report Type: 
  Country: None (occurrence: None)
  Receive Date: 20100908
  Receipt Date: 20100826
  Transmission Date: 20110219
  Serious: Yes (Other)
  Sender: FDA-Public Use
  Company Number: PHHY2010NO56197

PATIENT
  Sex: Male

DRUGS (12)
  1. ZOMETA [Suspect]
     Indication: PROSTATE CANCER
     Dosage: UNK
     Route: 042
     Dates: end: 20080301
  2. MEDROL [Suspect]
  3. NEXIUM [Concomitant]
  4. SPIRIVA [Concomitant]
  5. NUELIN [Concomitant]
  6. AEROBEC AUTOHALER [Concomitant]
  7. ZOLADEX [Concomitant]
  8. UNILOC [Concomitant]
  9. PARACET [Concomitant]
  10. ZESTRIL [Concomitant]
  11. SURMONTIL [Concomitant]
  12. SEREVENT [Concomitant]

REACTIONS (1)
  - OSTEONECROSIS OF JAW [None]
